FAERS Safety Report 21683313 (Version 1)
Quarter: 2022Q4

REPORT INFORMATION
  Report Type: Spontaneous
  Country: GB (occurrence: GB)
  Receive Date: 20221205
  Receipt Date: 20221205
  Transmission Date: 20230112
  Serious: Yes (Hospitalization, Other)
  Sender: FDA-Public Use
  Company Number: None

PATIENT
  Age: 88 Year

DRUGS (16)
  1. OMEPRAZOLE [Suspect]
     Active Substance: OMEPRAZOLE
     Indication: Product used for unknown indication
     Dosage: 20 MILLIGRAM DAILY; ONE TO BE TAKEN EACH DAY BEFORE EATING AND DRINKING, IF NEEDED, UNIT DOSE: 20MG,
     Route: 065
  2. AMOXICILLIN [Concomitant]
     Active Substance: AMOXICILLIN
     Indication: Product used for unknown indication
     Dosage: 1500 MILLIGRAM DAILY; UNIT DOSE:500MG, FREQUENCY: ONE TO BE TAKEN THREE TIMES A DAY, STRENGTH : 500
  3. CHOLECALCIFEROL [Concomitant]
     Active Substance: CHOLECALCIFEROL
     Indication: Product used for unknown indication
     Dosage: 3 GRAM DAILY; COLECALCIFEROL 400UNIT /CALCIUM CARBONATE, TWO PER DAY, PREFERABLY ONE TABLET EACH MOR
  4. DOCUSATE [Concomitant]
     Active Substance: DOCUSATE
     Indication: Constipation
     Dosage: 400 MILLIGRAM DAILY; TAKE TWO TWICE DAILY IF NEEDED, UNIT DOSE: 100MG, STRENGTH : 100 MG
  5. MINERAL OIL\PETROLATUM\WAX, EMULSIFYING [Concomitant]
     Active Substance: MINERAL OIL\PETROLATUM\WAX, EMULSIFYING
     Indication: Product used for unknown indication
     Dosage: APPLY 2-3 TIMES DAILY AS NEEDED
  6. LACTULOSE [Concomitant]
     Active Substance: LACTULOSE
     Indication: Constipation
     Dosage: 30 ML DAILY; SOLUTION, UNIT DOSE: 15ML TO BE TAKEN TWICE A DAY AS NEEDED
  7. LIDOCAINE [Concomitant]
     Active Substance: LIDOCAINE
     Indication: Product used for unknown indication
     Dosage: LIDOCAINE 5% / HYDROCORTISONE ACETATE 0.275% OINTMENT, APPLY TWICE DAILY
  8. HYDROCORTISONE [Concomitant]
     Active Substance: HYDROCORTISONE
     Indication: Product used for unknown indication
     Dosage: LIDOCAINE 5% / HYDROCORTISONE ACETATE 0.275% OINTMENT, APPLY TWICE DAILY
  9. ACETAMINOPHEN [Concomitant]
     Active Substance: ACETAMINOPHEN
     Indication: Product used for unknown indication
     Dosage: 2000 MILLIGRAM DAILY; TWO TO BE TAKEN EVERY 6 HOURS/FOUR TIMES A DAY IF NEEDED, UNIT DOSE: 500MG, ST
  10. PREDNISOLONE [Concomitant]
     Active Substance: PREDNISOLONE
     Indication: Product used for unknown indication
     Dosage: 8 TABLETS IN THE MORNING FOR 5 DAYS, UNIT DOSE: 5MG, STRENGTH : 5 MG
  11. ALBUTEROL [Concomitant]
     Active Substance: ALBUTEROL
     Indication: Product used for unknown indication
  12. SODIUM ALGINATE [Concomitant]
     Active Substance: SODIUM ALGINATE
     Indication: Product used for unknown indication
     Dosage: SODIUM ALGINATE 500MG / POTASSIUM BICARBONATE 100MG. 1/2 TO BE CHEWED AFTER MEALS AND AT BEDTIME.
  13. POTASSIUM BICARBONATE [Concomitant]
     Active Substance: POTASSIUM BICARBONATE
     Indication: Product used for unknown indication
     Dosage: SODIUM ALGINATE 500MG / POTASSIUM BICARBONATE 100MG. 1/2 TO BE CHEWED AFTER MEALS AND AT BEDTIME, SU
  14. TRELEGY ELLIPTA [Concomitant]
     Active Substance: FLUTICASONE FUROATE\UMECLIDINIUM BROMIDE\VILANTEROL TRIFENATATE
     Indication: Product used for unknown indication
     Dosage: 1 DOSAGE FORMS DAILY; 92MICROGRAMS/55MICROGRAMS/DOSE/22MICROGRAMS/DOSE DRY POWDER INHALER, ONE DOSE
     Route: 055
  15. WARFARIN [Concomitant]
     Active Substance: WARFARIN
     Indication: Product used for unknown indication
     Dosage: TAKE AS PRESCRIBED IN ANTICOAGULANT TREATMENT BOOK, UNIT DOSE: 1MG, STRENGTH : 1 MG
  16. VENTOLIN [Concomitant]
     Active Substance: ALBUTEROL SULFATE
     Indication: Product used for unknown indication
     Dosage: VENTOLIN 100MICROGRAMS/DOSE EVOHALER (GLAXOSMITHKLINE UK LTD), INHALE 2 DOSES AS NEEDED, STRENGTH :
     Route: 055

REACTIONS (1)
  - Osteoporosis [Unknown]
